FAERS Safety Report 7037328-5 (Version None)
Quarter: 2010Q4

REPORT INFORMATION
  Report Type: 
  Country: None (occurrence: None)
  Receive Date: 20101011
  Receipt Date: 20101007
  Transmission Date: 20110411
  Serious: Yes (Death)
  Sender: FDA-Public Use
  Company Number: SI-ROCHE-731896

PATIENT
  Age: 52 Year
  Sex: Male

DRUGS (2)
  1. VALCYTE [Suspect]
     Indication: PRODUCT USED FOR UNKNOWN INDICATION
     Route: 065
  2. MYFORTIC [Concomitant]
     Dosage: DRUG NAME: MYFORTIC/MYCOPHENOLIC ACID

REACTIONS (1)
  - INFECTION [None]
